FAERS Safety Report 8222466-1 (Version None)
Quarter: 2012Q1

REPORT INFORMATION
  Report Type: 
  Country: None (occurrence: None)
  Receive Date: 20120320
  Receipt Date: 20120313
  Transmission Date: 20120608
  Serious: Yes (Death, Hospitalization, Other)
  Sender: FDA-Public Use
  Company Number: PHEH2012US004537

PATIENT
  Sex: Male
  Weight: 124 kg

DRUGS (36)
  1. CLONIDINE [Concomitant]
     Dosage: UNK
     Route: 062
  2. FLOMAX [Concomitant]
     Dosage: 1 DF, QHS
  3. CETIRIZINE [Concomitant]
     Dosage: 5 MG, QD
     Route: 048
  4. QUINAPRIL [Concomitant]
     Dosage: UNK
     Dates: end: 20100526
  5. POTASSIUM CHLORIDE [Concomitant]
  6. METOPROLOL SUCCINATE [Concomitant]
     Dosage: 100 MG, Q12H
     Route: 048
  7. SERTRALINE HYDROCHLORIDE [Concomitant]
     Dosage: 100 MG, QHS
     Route: 048
  8. INFLUENZA VACCINE [Concomitant]
     Dosage: UNK
     Dates: start: 20111004
  9. NYSTATIN [Concomitant]
     Dosage: 5 ML, UNK
     Route: 048
  10. INSULIN ASPART [Concomitant]
     Dosage: 40 U, TID, BEFORE MEALS
     Route: 058
  11. OLANZAPINE [Concomitant]
     Dosage: 5 MG, Q12H
     Route: 048
  12. OXCARBAZEPINE [Concomitant]
  13. INFLUENZA VACCINE [Concomitant]
     Dosage: UNK
     Dates: start: 20091007
  14. FUROSEMIDE [Concomitant]
     Dosage: 40 MG, BID
     Route: 048
  15. NEXIUM [Concomitant]
     Dosage: 40 MG, BID
     Route: 048
  16. DIPHTHERIA AND TETANUS TOXOIDS AND PERTUSSIS [Concomitant]
     Dosage: UNK
     Dates: start: 20101026
  17. OXYCODONE HCL [Concomitant]
     Dosage: 20 MG, Q12H
     Route: 048
  18. COZAAR [Concomitant]
     Dosage: 1 DF, BID
     Route: 048
  19. ASTELIN [Concomitant]
  20. NEORAL [Suspect]
     Indication: LUNG TRANSPLANT
     Dosage: 100 MG, Q12H
     Route: 048
     Dates: start: 20070508
  21. INFLUENZA VACCINE [Concomitant]
     Dosage: UNK
     Dates: start: 20091110
  22. VYTORIN [Concomitant]
     Dosage: 1 DF, QD
     Route: 048
  23. METOLAZONE [Concomitant]
     Dosage: 2.5 MG, QD
     Route: 048
  24. INSULIN GLARGINE [Concomitant]
     Dosage: 40 U, QHS
     Route: 058
  25. PHENYLEPHRINE HCL [Concomitant]
     Dosage: UNK
  26. NICARDIPINE HCL [Concomitant]
     Dosage: 20 MG, UNK
     Route: 048
  27. PREDNISONE TAB [Concomitant]
     Dosage: 8 MG, QD
     Route: 048
  28. AZITHROMYCIN [Concomitant]
     Dosage: 250 MG, ON MONDAY, WED AND FRIDAY
     Route: 048
  29. ALBUTEROL [Concomitant]
     Dosage: UNK
  30. ALENDRONATE SODIUM [Concomitant]
     Dosage: 70 MG, ONCE A WEEK
     Route: 048
  31. PROAIR HFA (ALBUTEROL SULFATE) INHALATION AEROSOL [Concomitant]
  32. PNEUMOCOCCAL VACCINE [Concomitant]
     Dosage: UNK
     Dates: start: 20090918
  33. MYCOPHENOLATE MOFETIL [Concomitant]
     Dosage: 1000 MG, Q12H
     Route: 048
  34. AMLODIPINE [Concomitant]
     Dosage: 5 MG, QD
     Route: 048
  35. MINOXIDIL [Concomitant]
     Dosage: 0.5 MG, QD
     Route: 048
  36. NIFEDIPINE [Concomitant]

REACTIONS (15)
  - DEATH [None]
  - OEDEMA [None]
  - BLOOD PRESSURE INCREASED [None]
  - LUNG TRANSPLANT REJECTION [None]
  - FLUID OVERLOAD [None]
  - ARTHRALGIA [None]
  - BLOOD UREA INCREASED [None]
  - OBLITERATIVE BRONCHIOLITIS [None]
  - COMPLICATIONS OF TRANSPLANTED LUNG [None]
  - OXYGEN CONSUMPTION INCREASED [None]
  - CARDIAC FAILURE [None]
  - BLOOD GLUCOSE INCREASED [None]
  - BLOOD CREATININE INCREASED [None]
  - DYSPNOEA [None]
  - BACK PAIN [None]
